FAERS Safety Report 13132653 (Version 1)
Quarter: 2017Q1

REPORT INFORMATION
  Report Type: Spontaneous
  Country: RO (occurrence: RO)
  Receive Date: 20170120
  Receipt Date: 20170120
  Transmission Date: 20170428
  Serious: Yes (Life-Threatening, Other)
  Sender: FDA-Public Use
  Company Number: RO-ACCORD-047444

PATIENT
  Sex: Female
  Weight: 3.8 kg

DRUGS (3)
  1. BLEOMYCIN [Suspect]
     Active Substance: BLEOMYCIN SULFATE
     Indication: CONGENITAL TERATOMA
  2. ETOPOSIDE. [Suspect]
     Active Substance: ETOPOSIDE
     Indication: CONGENITAL TERATOMA
  3. CISPLATIN. [Suspect]
     Active Substance: CISPLATIN
     Indication: CONGENITAL TERATOMA

REACTIONS (6)
  - Hydrocephalus [Recovered/Resolved]
  - Sepsis [Recovered/Resolved]
  - Wound dehiscence [Recovered/Resolved]
  - Off label use [Unknown]
  - Subarachnoid haemorrhage [Recovered/Resolved]
  - Wound infection [Recovered/Resolved]
